FAERS Safety Report 14275527 (Version 1)
Quarter: 2017Q4

REPORT INFORMATION
  Report Type: Not Available
  Country: SG (occurrence: SG)
  Receive Date: 20171212
  Receipt Date: 20171212
  Transmission Date: 20180321
  Serious: Yes (Other)
  Sender: FDA-Public Use
  Company Number: SG-AKORN-75251

PATIENT
  Age: 13 Year
  Sex: Male

DRUGS (1)
  1. SULFAMETHOXAZOLE + TRIMETHOPRIM ORAL SUSPENSION USP [Suspect]
     Active Substance: SULFAMETHOXAZOLE\TRIMETHOPRIM

REACTIONS (10)
  - Rosacea [Recovered/Resolved]
  - Blood albumin decreased [Recovered/Resolved]
  - Juvenile idiopathic arthritis [Recovered/Resolved]
  - Transaminases increased [Recovered/Resolved]
  - Rash morbilliform [Recovered/Resolved]
  - Hyperthyroidism [Recovered/Resolved]
  - Anhidrosis [Recovered/Resolved]
  - Coagulopathy [Recovered/Resolved]
  - Photosensitivity reaction [Recovered/Resolved]
  - Drug reaction with eosinophilia and systemic symptoms [Recovered/Resolved]
